FAERS Safety Report 23134319 (Version 5)
Quarter: 2025Q4

REPORT INFORMATION
  Report Type: Spontaneous
  Country: JP (occurrence: JP)
  Receive Date: 20231101
  Receipt Date: 20251201
  Transmission Date: 20260117
  Serious: Yes (Death, Hospitalization, Other)
  Sender: DAIICHI
  Company Number: JP-DSJP-DSJ-2023-145032

PATIENT
  Age: 71 Year
  Sex: Male
  Weight: 54 kg

DRUGS (8)
  1. ENHERTU [Suspect]
     Active Substance: FAM-TRASTUZUMAB DERUXTECAN-NXKI
     Indication: HER2 positive gastric cancer
     Dosage: 345.6 MG
     Route: 042
     Dates: start: 20230822, end: 20230822
  2. ENHERTU [Suspect]
     Active Substance: FAM-TRASTUZUMAB DERUXTECAN-NXKI
     Dosage: 290 MG
     Route: 042
     Dates: start: 20230912, end: 20230912
  3. NAPROXEN [Concomitant]
     Active Substance: NAPROXEN
     Indication: Tumour associated fever
     Dosage: UNK
     Route: 048
     Dates: start: 20230822, end: 20231003
  4. AMITIZA [Concomitant]
     Active Substance: LUBIPROSTONE
     Indication: Product used for unknown indication
     Dosage: UNK
     Route: 048
     Dates: start: 20230104, end: 20231003
  5. MOVICOL [Concomitant]
     Active Substance: POLYETHYLENE GLYCOL 3350\POTASSIUM CHLORIDE\SODIUM BICARBONATE\SODIUM CHLORIDE
     Indication: Product used for unknown indication
     Dosage: UNK
     Route: 048
     Dates: start: 20230711, end: 20231003
  6. MAGNESIUM OXIDE [Concomitant]
     Active Substance: MAGNESIUM OXIDE
     Indication: Product used for unknown indication
     Dosage: UNK
     Route: 048
     Dates: start: 20230425, end: 20231003
  7. MIYA-BM [Concomitant]
     Active Substance: CLOSTRIDIUM BUTYRICUM SPORES STRAIN M-55
     Indication: Product used for unknown indication
     Dosage: UNK
     Route: 048
     Dates: start: 20230211, end: 20231003
  8. CALONAL [Concomitant]
     Active Substance: ACETAMINOPHEN
     Indication: Product used for unknown indication
     Dosage: UNK
     Route: 048
     Dates: start: 20230724, end: 20231003

REACTIONS (2)
  - Interstitial lung disease [Fatal]
  - Myelosuppression [Unknown]

NARRATIVE: CASE EVENT DATE: 20230912
